FAERS Safety Report 8863341 (Version 1)
Quarter: 2012Q4

REPORT INFORMATION
  Report Type: 
  Country: US (occurrence: US)
  Receive Date: 20121025
  Receipt Date: 20121025
  Transmission Date: 20130627
  Serious: Yes (Other)
  Sender: FDA-Public Use
  Company Number: US-GLAXOSMITHKLINE-A0998191A

PATIENT
  Age: 75 Year
  Sex: Male

DRUGS (4)
  1. VOTRIENT [Suspect]
     Indication: RENAL CELL CARCINOMA
     Dosage: 800MG per day
     Route: 048
     Dates: start: 20121006, end: 20121018
  2. ASPIRIN [Concomitant]
  3. LIPITOR [Concomitant]
  4. RAPAFLO [Concomitant]

REACTIONS (6)
  - Abasia [Recovering/Resolving]
  - Diarrhoea [Recovering/Resolving]
  - Ill-defined disorder [Recovering/Resolving]
  - Eye swelling [Recovering/Resolving]
  - Aphasia [Recovering/Resolving]
  - Activities of daily living impaired [Recovering/Resolving]
